FAERS Safety Report 8077584-8 (Version None)
Quarter: 2012Q1

REPORT INFORMATION
  Report Type: 
  Country: None (occurrence: None)
  Receive Date: 20120123
  Receipt Date: 20120113
  Transmission Date: 20120608
  Serious: Yes (Hospitalization, Disabling)
  Sender: FDA-Public Use
  Company Number: 2012MA000745

PATIENT
  Age: 81 Year
  Sex: Male

DRUGS (6)
  1. GABAPENTIN [Suspect]
     Dates: start: 20110601
  2. METFORMIN HCL [Concomitant]
  3. DIGOXIN [Concomitant]
  4. CLARITHROMYCIN [Concomitant]
  5. WARFARIN SODIUM [Concomitant]
  6. LAXIDO [Concomitant]

REACTIONS (2)
  - CONFUSIONAL STATE [None]
  - SEDATION [None]
